FAERS Safety Report 6630439-5 (Version None)
Quarter: 2010Q1

REPORT INFORMATION
  Report Type: 
  Country: None (occurrence: None)
  Receive Date: 20100311
  Receipt Date: 20090810
  Transmission Date: 20100710
  Serious: No
  Sender: FDA-Public Use
  Company Number: US-BIOGENIDEC-2009BI019038

PATIENT
  Sex: Female

DRUGS (1)
  1. AVONEX [Suspect]
     Indication: MULTIPLE SCLEROSIS
     Route: 030
     Dates: start: 20070101

REACTIONS (14)
  - BALANCE DISORDER [None]
  - BLOOD CORTISOL DECREASED [None]
  - BRAIN HYPOXIA [None]
  - CLUMSINESS [None]
  - DIZZINESS [None]
  - FALL [None]
  - HEAD INJURY [None]
  - HYPOGLYCAEMIA [None]
  - INCREASED TENDENCY TO BRUISE [None]
  - INFLUENZA [None]
  - LOSS OF CONSCIOUSNESS [None]
  - MEMORY IMPAIRMENT [None]
  - TREMOR [None]
  - WEIGHT DECREASED [None]
